FAERS Safety Report 8591464-0 (Version None)
Quarter: 2012Q3

REPORT INFORMATION
  Report Type: 
  Country: None (occurrence: None)
  Receive Date: 20120814
  Receipt Date: 20120808
  Transmission Date: 20120928
  Serious: Yes (Other)
  Sender: FDA-Public Use
  Company Number: CA-US-EMD SERONO, INC.-7153055

PATIENT
  Sex: Male

DRUGS (2)
  1. SAIZEN [Suspect]
     Indication: RENAL FAILURE CHRONIC
     Route: 058
     Dates: start: 20110527
  2. UNSPECIFIED ANTIBIOTIC [Suspect]
     Indication: URINARY TRACT INFECTION

REACTIONS (3)
  - PYREXIA [None]
  - URINARY TRACT INFECTION [None]
  - VOMITING [None]
